FAERS Safety Report 7071988-8 (Version None)
Quarter: 2010Q4

REPORT INFORMATION
  Report Type: 
  Country: None (occurrence: None)
  Receive Date: 20101028
  Receipt Date: 20101028
  Transmission Date: 20110411
  Serious: No
  Sender: FDA-Public Use
  Company Number: None

PATIENT
  Sex: Male
  Weight: 9.9791 kg

DRUGS (1)
  1. HYLANDS HOEMOPATHIC HYLAND'S INC. [Suspect]
     Indication: TEETHING
     Dosage: 2 TABLETS 2 X'S A DAY PO
     Route: 048
     Dates: start: 20100301, end: 20100915

REACTIONS (1)
  - VOMITING [None]
